FAERS Safety Report 9251026 (Version 1)
Quarter: 2013Q1

REPORT INFORMATION
  Report Type: Spontaneous
  Country: US (occurrence: None)
  Receive Date: 20130305
  Receipt Date: 20130305
  Transmission Date: 20140127
  Serious: Yes (Hospitalization)
  Sender: FDA-Public Use
  Company Number: 163-21880-12071287

PATIENT
  Age: 70 Year
  Sex: Male

DRUGS (6)
  1. REVLIMID (LENALIDOMIDE) (CAPSULES) [Suspect]
     Indication: PLASMA CELL MYELOMA
     Dosage: 15MG, 14 IN 14 D, PO
     Route: 048
     Dates: start: 20120427
  2. OMEGA 3 (FISH OIL) [Concomitant]
  3. SAW PALMETTO (SERENOA REPENS) [Concomitant]
  4. LUTEIN (XANTOFYL) [Concomitant]
  5. COUMADIN (WARFARIN SODIUM) [Concomitant]
  6. ZOPRAN (ONDANSETRON HYDROCHLORIDE) [Concomitant]

REACTIONS (1)
  - Pulmonary thrombosis [None]
